FAERS Safety Report 15751595 (Version 1)
Quarter: 2018Q4

REPORT INFORMATION
  Report Type: Spontaneous
  Country: US (occurrence: US)
  Receive Date: 20181221
  Receipt Date: 20181221
  Transmission Date: 20190205
  Serious: No
  Sender: FDA-Public Use
  Company Number: US-UPSHER-SMITH LABORATORIES, LLC-2018USL00035

PATIENT
  Sex: Female

DRUGS (3)
  1. POTASSIUM CHLORIDE MICRO-DISPERSIBLE [Suspect]
     Active Substance: POTASSIUM CHLORIDE
     Indication: HYPOKALAEMIA
     Dosage: UNK
     Dates: start: 2017
  2. POTASSIUM CHLORIDE EXTENDED RELEASE (GLENMARK) [Suspect]
     Active Substance: POTASSIUM CHLORIDE
     Dosage: 30 MEQ, 3X/DAY
     Route: 048
     Dates: start: 2017, end: 2017
  3. POTASSIUM CHLORIDE EXTENDED RELEASE (GLENMARK) [Suspect]
     Active Substance: POTASSIUM CHLORIDE
     Indication: HYPOKALAEMIA
     Dosage: 20 MEQ, 3X/DAY
     Route: 048
     Dates: start: 2017, end: 2017

REACTIONS (4)
  - Blood potassium decreased [Recovered/Resolved]
  - Drug ineffective [Not Recovered/Not Resolved]
  - Tremor [Recovered/Resolved]
  - Constipation [Recovered/Resolved]

NARRATIVE: CASE EVENT DATE: 2017
